FAERS Safety Report 4301187-1 (Version None)
Quarter: 2004Q1

REPORT INFORMATION
  Report Type: 
  Country: None (occurrence: None)
  Receive Date: 20040218
  Receipt Date: 20031219
  Transmission Date: 20041129
  Serious: No
  Sender: FDA-Public Use
  Company Number: 2003-12-1417

PATIENT
  Age: 51 Year
  Sex: Female
  Weight: 63.05 kg

DRUGS (2)
  1. PEG-INTRON [Suspect]
     Indication: HEPATITIS C
     Dosage: 120 MCG
     Route: 058
     Dates: start: 20030301
  2. REBETOL [Suspect]
     Indication: HEPATITIS C
     Route: 048

REACTIONS (4)
  - BETA 2 MICROGLOBULIN INCREASED [None]
  - COUGH [None]
  - DYSPNOEA [None]
  - PYREXIA [None]
